FAERS Safety Report 8351300 (Version 4)
Quarter: 2013Q4

REPORT INFORMATION
  Report Type: Report from Study
  Country: US (occurrence: US)
  Receive Date: 20120124
  Receipt Date: 20131218
  Transmission Date: 20140711
  Serious: Yes (Hospitalization)
  Sender: FDA-Public Use
  Company Number: PHHO2005US12514

PATIENT
  Age: 70 Year
  Sex: Male
  Weight: 101.9 kg

DRUGS (13)
  1. NEORAL [Suspect]
     Indication: HEART TRANSPLANT
     Dosage: 100 MG, BID
     Route: 048
     Dates: start: 20000206
  2. GEMFIBROZIL [Interacting]
     Indication: HYPERTRIGLYCERIDAEMIA
     Dosage: 600 MG, BID
     Route: 048
     Dates: start: 20020212
  3. ZORTRESS [Suspect]
     Indication: HEART TRANSPLANT
     Dosage: 3 MG, QD
     Route: 048
     Dates: start: 20041028
  4. VYTORIN [Interacting]
     Indication: HYPERTRIGLYCERIDAEMIA
     Dosage: 10 MG, QD
     Route: 048
     Dates: start: 20050207, end: 20050711
  5. CARDURA [Concomitant]
  6. DIOVAN [Concomitant]
  7. ASA [Concomitant]
  8. COLACE [Concomitant]
  9. LOPID [Concomitant]
  10. PRAVACHOL [Concomitant]
  11. TUMS [Concomitant]
  12. GLUCOTROL [Concomitant]
  13. INSULIN [Concomitant]

REACTIONS (7)
  - Rhabdomyolysis [Recovered/Resolved]
  - Myalgia [Recovered/Resolved]
  - Muscular weakness [Recovered/Resolved]
  - Blood creatine phosphokinase increased [Recovered/Resolved]
  - Malaise [Recovered/Resolved]
  - Transaminases increased [Recovered/Resolved]
  - Drug interaction [Recovered/Resolved]
